FAERS Safety Report 5957594-4 (Version None)
Quarter: 2008Q4

REPORT INFORMATION
  Report Type: 
  Country: None (occurrence: None)
  Receive Date: 20081117
  Receipt Date: 20081117
  Transmission Date: 20090506
  Serious: Yes (Other)
  Sender: FDA-Public Use
  Company Number: None

PATIENT
  Sex: Female
  Weight: 66.2252 kg

DRUGS (3)
  1. BONIVA [Suspect]
     Indication: OSTEOPENIA
     Dosage: 1 PILL ONCE A MONTH
     Dates: start: 20070901
  2. BONIVA [Suspect]
     Indication: OSTEOPENIA
     Dosage: 1 PILL ONCE A MONTH
     Dates: start: 20071001
  3. BONIVA [Suspect]
     Indication: OSTEOPENIA
     Dosage: 1 PILL ONCE A MONTH
     Dates: start: 20071101

REACTIONS (2)
  - RASH [None]
  - URTICARIA [None]
